FAERS Safety Report 19856756 (Version 1)
Quarter: 2021Q3

REPORT INFORMATION
  Report Type: Spontaneous
  Country: US (occurrence: US)
  Receive Date: 20210920
  Receipt Date: 20210920
  Transmission Date: 20211014
  Serious: No
  Sender: FDA-Public Use
  Company Number: US-ASTRAZENECA-2021A708926

PATIENT
  Sex: Male
  Weight: 102.5 kg

DRUGS (16)
  1. METFORMIN [Concomitant]
     Active Substance: METFORMIN HYDROCHLORIDE
  2. AMIODARONE [Concomitant]
     Active Substance: AMIODARONE
  3. ASPIRIN. [Concomitant]
     Active Substance: ASPIRIN
  4. ISOSORBIDE MONONITRATE. [Concomitant]
     Active Substance: ISOSORBIDE MONONITRATE
  5. GLIPIZIDE. [Concomitant]
     Active Substance: GLIPIZIDE
  6. LOSARTAN. [Concomitant]
     Active Substance: LOSARTAN
  7. FENOFIBRATE. [Concomitant]
     Active Substance: FENOFIBRATE
  8. ELIPTO INCRUSE INHALER [Concomitant]
  9. BYDUREON BCISE [Suspect]
     Active Substance: EXENATIDE
     Indication: TYPE 2 DIABETES MELLITUS
     Route: 058
  10. RANOLAZINE. [Concomitant]
     Active Substance: RANOLAZINE
  11. ATORVASTATIN [Concomitant]
     Active Substance: ATORVASTATIN
  12. MULTIVITAMIN [Concomitant]
     Active Substance: VITAMINS
  13. CARVEDILOL. [Concomitant]
     Active Substance: CARVEDILOL
  14. FURESOMIDE [Concomitant]
  15. CLOPIDOGREL [Concomitant]
     Active Substance: CLOPIDOGREL BISULFATE
  16. VITAMIN B12 [Concomitant]
     Active Substance: CYANOCOBALAMIN

REACTIONS (2)
  - Urticaria [Recovered/Resolved]
  - Incorrect dose administered [Not Recovered/Not Resolved]
